FAERS Safety Report 6154362-8 (Version None)
Quarter: 2009Q2

REPORT INFORMATION
  Report Type: 
  Country: None (occurrence: None)
  Receive Date: 20090410
  Receipt Date: 20090402
  Transmission Date: 20091009
  Serious: Yes (Other)
  Sender: FDA-Public Use
  Company Number: 2009SP006569

PATIENT
  Age: 31 Year
  Sex: Female
  Weight: 70.1 kg

DRUGS (5)
  1. PEG-INTRON [Suspect]
     Indication: HEPATITIS C
     Dosage: 120 MCG; SC
     Route: 058
     Dates: start: 20081010, end: 20090324
  2. RIBAVIRIN [Suspect]
     Indication: HEPATITIS C
     Dosage: 5 DF;QD;PO; 4 DF;QD;PO
     Route: 048
     Dates: end: 20090324
  3. RIBAVIRIN [Suspect]
     Indication: HEPATITIS C
     Dosage: 5 DF;QD;PO; 4 DF;QD;PO
     Route: 048
     Dates: start: 20081009
  4. BLINDED SCH 503034 (S-P) (HCV PROTEASE INHIBITOR) [Suspect]
     Indication: HEPATITIS C
     Dosage: 4 DF;TDI;PO
     Route: 048
     Dates: start: 20081104, end: 20090324
  5. GRACIAL [Concomitant]

REACTIONS (3)
  - CONDITION AGGRAVATED [None]
  - MUSCLE SPASTICITY [None]
  - UPPER MOTOR NEURONE LESION [None]
